FAERS Safety Report 16847152 (Version 1)
Quarter: 2019Q3

REPORT INFORMATION
  Report Type: Report from Study
  Country: NL (occurrence: NL)
  Receive Date: 20190924
  Receipt Date: 20190924
  Transmission Date: 20191005
  Serious: Yes (Hospitalization, Other)
  Sender: FDA-Public Use
  Company Number: NL-CELGENEUS-NLD-20190905838

PATIENT
  Age: 64 Year
  Sex: Male
  Weight: 88.3 kg

DRUGS (6)
  1. FILGRASTIM [Suspect]
     Active Substance: FILGRASTIM
     Indication: PLASMA CELL MYELOMA
     Route: 028
     Dates: start: 20131002
  2. LENALIDOMIDE [Suspect]
     Active Substance: LENALIDOMIDE
     Indication: PLASMA CELL MYELOMA
     Dosage: 10MG/5MG
     Route: 048
     Dates: start: 20140219, end: 20181211
  3. CYCLOPHOSPHAMIDE. [Suspect]
     Active Substance: CYCLOPHOSPHAMIDE
     Indication: PLASMA CELL MYELOMA
     Dosage: 8800 MILLIGRAM
     Route: 041
     Dates: start: 20130617, end: 20130819
  4. DEXAMETHASONE. [Suspect]
     Active Substance: DEXAMETHASONE
     Indication: PLASMA CELL MYELOMA
     Dosage: 320 MILLIGRAM
     Route: 041
     Dates: start: 20130617, end: 20130819
  5. MELPHALAN. [Suspect]
     Active Substance: MELPHALAN
     Indication: PLASMA CELL MYELOMA
     Dosage: 220 MILLIGRAM
     Route: 058
     Dates: start: 20131119, end: 20131120
  6. VELCADE [Suspect]
     Active Substance: BORTEZOMIB
     Indication: PLASMA CELL MYELOMA
     Dosage: 11.2 MILLIGRAM
     Route: 058
     Dates: start: 20130617, end: 20130819

REACTIONS (1)
  - B-cell type acute leukaemia [Recovered/Resolved]

NARRATIVE: CASE EVENT DATE: 20190415
